FAERS Safety Report 13462865 (Version 3)
Quarter: 2017Q2

REPORT INFORMATION
  Report Type: Spontaneous
  Country: IL (occurrence: IL)
  Receive Date: 20170420
  Receipt Date: 20170608
  Transmission Date: 20170830
  Serious: Yes (Other)
  Sender: FDA-Public Use
  Company Number: IL-TEVA-761545ACC

PATIENT
  Age: 62 Year
  Sex: Female
  Weight: 41 kg

DRUGS (11)
  1. VASODIP [Concomitant]
     Active Substance: LERCANIDIPINE HYDROCHLORIDE
     Indication: BLOOD PRESSURE MEASUREMENT
  2. FENTANYL. [Concomitant]
     Active Substance: FENTANYL
     Indication: PAIN
     Dosage: PATCHES
  3. EUTHYROX [Concomitant]
     Active Substance: LEVOTHYROXINE SODIUM
     Indication: THYROID DISORDER
  4. RAMIPRIL. [Concomitant]
     Active Substance: RAMIPRIL
     Indication: BLOOD PRESSURE MEASUREMENT
  5. MICROPIRIN [Concomitant]
     Active Substance: ASPIRIN
     Indication: BLOOD DISORDER
  6. EVEROLIMUS [Concomitant]
     Active Substance: EVEROLIMUS
  7. FENTORA [Suspect]
     Active Substance: FENTANYL CITRATE
     Indication: BREAKTHROUGH PAIN
     Dosage: SEVERAL TIMES A DAY
     Route: 065
     Dates: start: 201610
  8. FEMARA [Concomitant]
     Active Substance: LETROZOLE
  9. OPTALGIN DROPS [Concomitant]
     Indication: PAIN
  10. CYMBALTA [Concomitant]
     Active Substance: DULOXETINE HYDROCHLORIDE
     Indication: PAIN
  11. SLOW - K [Concomitant]
     Indication: MINERAL SUPPLEMENTATION

REACTIONS (5)
  - Freezing phenomenon [Unknown]
  - Inappropriate schedule of drug administration [Unknown]
  - Drug dose titration not performed [Unknown]
  - Musculoskeletal stiffness [Unknown]
  - Communication disorder [Unknown]
